FAERS Safety Report 19027593 (Version 1)
Quarter: 2021Q1

REPORT INFORMATION
  Report Type: Spontaneous
  Country: TR (occurrence: TR)
  Receive Date: 20210319
  Receipt Date: 20210319
  Transmission Date: 20210420
  Serious: Yes (Hospitalization)
  Sender: FDA-Public Use
  Company Number: TR-JNJFOC-20210331544

PATIENT
  Age: 76 Year
  Sex: Female

DRUGS (2)
  1. ASPIRIN 100 MG [Suspect]
     Active Substance: ASPIRIN
     Indication: ATRIAL FIBRILLATION
     Dosage: 100 MG
  2. XARELTO [Suspect]
     Active Substance: RIVAROXABAN
     Indication: ATRIAL FIBRILLATION
     Dosage: 20 MG
     Route: 048

REACTIONS (3)
  - Decreased appetite [Unknown]
  - Ischaemic stroke [Unknown]
  - Product administration error [Unknown]

NARRATIVE: CASE EVENT DATE: 20210310
